FAERS Safety Report 9080075 (Version 3)
Quarter: 2013Q1

REPORT INFORMATION
  Report Type: Report from Study
  Country: US (occurrence: US)
  Receive Date: 20130130
  Receipt Date: 20130311
  Transmission Date: 20140127
  Serious: No
  Sender: FDA-Public Use
  Company Number: US-VERTEX PHARMACEUTICALS INC.-2013-001317

PATIENT
  Age: 57 None
  Sex: Male
  Weight: 106 kg

DRUGS (7)
  1. VX-950 (TELAPREVIR) [Suspect]
     Indication: HEPATITIS C
     Dosage: 750 MG, TID
     Route: 048
     Dates: start: 2012
  2. PEGASYS [Suspect]
     Indication: HEPATITIS C
     Dosage: 180 ?G, QW
     Route: 058
     Dates: start: 2012
  3. PEGASYS [Suspect]
     Dosage: 135 ?G, QW
     Route: 058
  4. RIBASPHERE [Suspect]
     Indication: HEPATITIS C
     Dosage: 600 MG, BID
     Route: 048
     Dates: start: 2012
  5. RIBASPHERE [Suspect]
     Dosage: 600 MG, QD
     Route: 048
  6. CIALIS [Concomitant]
     Dosage: 20 MG, PRN
  7. FLONASE [Concomitant]
     Dosage: UNK, PRN

REACTIONS (9)
  - White blood cell count decreased [Unknown]
  - Dizziness [Unknown]
  - Flatulence [Unknown]
  - Insomnia [Unknown]
  - Somnolence [Unknown]
  - Fatigue [Unknown]
  - Anaemia [Unknown]
  - Dysgeusia [Unknown]
  - Pruritus generalised [Unknown]
